FAERS Safety Report 8827259 (Version 4)
Quarter: 2014Q4

REPORT INFORMATION
  Report Type: Report from Study
  Country: BE (occurrence: BE)
  Receive Date: 20121005
  Receipt Date: 20141119
  Transmission Date: 20150529
  Serious: Yes (Hospitalization)
  Sender: FDA-Public Use
  Company Number: BE-ROCHE-1134338

PATIENT
  Age: 51 Year
  Sex: Female
  Weight: 71 kg

DRUGS (17)
  1. ZOVIRAX [Concomitant]
     Active Substance: ACYCLOVIR
     Indication: INFECTION
     Route: 065
     Dates: start: 20120904, end: 20121106
  2. OMEPRAZOLE. [Concomitant]
     Active Substance: OMEPRAZOLE
     Indication: GASTRIC ULCER
     Route: 065
     Dates: start: 20120911, end: 20120915
  3. LITICAN [Concomitant]
     Active Substance: ALIZAPRIDE HYDROCHLORIDE
     Indication: NAUSEA
     Route: 065
     Dates: start: 20121110, end: 20121113
  4. PARACETAMOL [Concomitant]
     Active Substance: ACETAMINOPHEN
     Indication: PYREXIA
     Route: 065
     Dates: start: 20120820, end: 20120905
  5. BELSAR PLUS [Concomitant]
     Indication: HYPERTENSION
     Route: 065
     Dates: start: 20120819, end: 20120911
  6. PANTOMED (BELGIUM) [Concomitant]
     Indication: GASTRIC ULCER
     Route: 065
     Dates: start: 20120816
  7. AUGMENTIN [Concomitant]
     Active Substance: AMOXICILLIN\CLAVULANATE POTASSIUM
     Indication: INFECTION
     Route: 065
     Dates: start: 20120823, end: 20120828
  8. BENDAMUSTINE [Suspect]
     Active Substance: BENDAMUSTINE
     Indication: LYMPHOMA
     Dosage: MOST RECENT DOSE ON: 08/MAR/2012. LAST DOSE TAKEN: 165 MG
     Route: 042
     Dates: start: 20111021
  9. EMCORETIC MITIS [Concomitant]
     Indication: HYPERTENSION
     Route: 065
     Dates: start: 1992
  10. AUGMENTIN [Concomitant]
     Active Substance: AMOXICILLIN\CLAVULANATE POTASSIUM
     Indication: INFECTION
     Route: 065
     Dates: start: 20120823, end: 20120828
  11. NEUPOGEN [Concomitant]
     Active Substance: FILGRASTIM
     Indication: NEUTROPENIA
     Route: 065
     Dates: start: 20121013, end: 20121128
  12. FLOXAPEN [Concomitant]
     Active Substance: FLUCLOXACILLIN
     Indication: FOLLICULITIS
     Route: 065
     Dates: start: 201307, end: 201308
  13. BELSAR PLUS [Concomitant]
     Route: 065
     Dates: start: 20120916
  14. NATRIUM BICARBONATE [Concomitant]
     Indication: INFECTION
     Route: 065
     Dates: start: 20120821, end: 20120821
  15. OLMETEC PLUS [Concomitant]
     Active Substance: HYDROCHLOROTHIAZIDE\OLMESARTAN MEDOXOMIL
     Indication: HYPERTENSION
     Route: 065
     Dates: start: 1992
  16. ROCEPHIN [Concomitant]
     Active Substance: CEFTRIAXONE SODIUM
     Indication: INFECTION
     Route: 065
     Dates: start: 20120819, end: 20120822
  17. RITUXIMAB [Suspect]
     Active Substance: RITUXIMAB
     Indication: LYMPHOMA
     Dosage: LAST VOLUME TAKEN: 1000 ML, DOSE CONCENTRATION: 0.69 MG/ML, MOST RECENT DOSE: 04/JUL/2012
     Route: 042
     Dates: start: 20111021

REACTIONS (2)
  - Vaginal ulceration [Recovered/Resolved]
  - Mucosal pain [Recovered/Resolved]

NARRATIVE: CASE EVENT DATE: 20120812
